FAERS Safety Report 15569146 (Version 3)
Quarter: 2018Q4

REPORT INFORMATION
  Report Type: Spontaneous
  Country: RO (occurrence: RO)
  Receive Date: 20181031
  Receipt Date: 20181107
  Transmission Date: 20190205
  Serious: Yes (Other)
  Sender: FDA-Public Use
  Company Number: RO-AMGEN-ROUSP2018151765

PATIENT
  Age: 38 Year
  Sex: Female
  Weight: 59 kg

DRUGS (2)
  1. ENBREL [Suspect]
     Active Substance: ETANERCEPT
     Indication: ANKYLOSING SPONDYLITIS
     Dosage: 50 MG, WEEKLY
     Route: 058
  2. AULIN [Concomitant]
     Active Substance: NIMESULIDE
     Indication: ANKYLOSING SPONDYLITIS
     Dosage: 2 DF, DAILY
     Route: 048

REACTIONS (4)
  - Leukocytosis [Not Recovered/Not Resolved]
  - Anaemia [Unknown]
  - Lymphoproliferative disorder [Unknown]
  - Lymphocytosis [Not Recovered/Not Resolved]
